FAERS Safety Report 9882112 (Version 3)
Quarter: 2014Q1

REPORT INFORMATION
  Report Type: Spontaneous
  Country: US (occurrence: US)
  Receive Date: 20140207
  Receipt Date: 20140219
  Transmission Date: 20141002
  Serious: Yes (Other)
  Sender: FDA-Public Use
  Company Number: US-009507513-1402USA003010

PATIENT
  Sex: 0

DRUGS (2)
  1. INTEGRILIN [Suspect]
     Indication: THROMBOSIS
     Dosage: 0.5-0.75 MICROGRAM/KG/MIN
  2. ASPIRIN [Concomitant]

REACTIONS (2)
  - Cerebral haemorrhage [Unknown]
  - Gastrointestinal haemorrhage [Unknown]
